FAERS Safety Report 9787657 (Version 1)
Quarter: 2013Q4

REPORT INFORMATION
  Report Type: Spontaneous
  Country: US (occurrence: None)
  Receive Date: 20131226
  Receipt Date: 20131226
  Transmission Date: 20140711
  Serious: Yes (Other)
  Sender: FDA-Public Use
  Company Number: 2013-US-004771

PATIENT
  Age: 51 Year
  Sex: Female
  Weight: 77.1 kg

DRUGS (2)
  1. XYREM (SODIUM OXYBATE) ORAL SOLUTION, 500MG/ML [Suspect]
     Indication: NARCOLEPSY
     Route: 048
     Dates: start: 201102, end: 2011
  2. ALLOPURINOL [Suspect]
     Indication: BLOOD URIC ACID INCREASED
     Route: 048
     Dates: start: 201310, end: 20131210

REACTIONS (9)
  - Angioedema [None]
  - Drug hypersensitivity [None]
  - Dyspnoea [None]
  - Chapped lips [None]
  - Stomatitis haemorrhagic [None]
  - Nasal discomfort [None]
  - Epistaxis [None]
  - Oropharyngeal pain [None]
  - Blood uric acid increased [None]
